FAERS Safety Report 5291453-8 (Version None)
Quarter: 2007Q2

REPORT INFORMATION
  Report Type: 
  Country: None (occurrence: None)
  Receive Date: 20070403
  Receipt Date: 20070328
  Transmission Date: 20071010
  Serious: Yes (Other)
  Sender: FDA-Public Use
  Company Number: OMPQ-PR-0703L-0181

PATIENT
  Age: 22 Month
  Sex: Female

DRUGS (1)
  1. OMNIPAQUE 140 [Suspect]
     Indication: DRUG USE FOR UNKNOWN INDICATION
     Dosage: 18 ML, SINGLE DOSE, EXTRAVASATION

REACTIONS (7)
  - EXTRAVASATION [None]
  - FIBROSIS [None]
  - IATROGENIC INJURY [None]
  - MEDIAN NERVE INJURY [None]
  - OEDEMA [None]
  - PROCEDURAL COMPLICATION [None]
  - ULNAR NERVE INJURY [None]
